FAERS Safety Report 9856629 (Version 2)
Quarter: 2014Q2

REPORT INFORMATION
  Report Type: Spontaneous
  Country: US (occurrence: US)
  Receive Date: 20140130
  Receipt Date: 20140513
  Transmission Date: 20141212
  Serious: Yes (Other)
  Sender: FDA-Public Use
  Company Number: US-UCBSA-110399

PATIENT
  Sex: Female
  Weight: 79.83 kg

DRUGS (1)
  1. CIMZIA [Suspect]
     Indication: CROHN^S DISEASE
     Dates: start: 20130624

REACTIONS (3)
  - Frequent bowel movements [Recovering/Resolving]
  - Blood potassium decreased [Recovering/Resolving]
  - Abdominal hernia [Not Recovered/Not Resolved]
